FAERS Safety Report 9325245 (Version 3)
Quarter: 2013Q3

REPORT INFORMATION
  Report Type: Report from Study
  Country: AU (occurrence: AU)
  Receive Date: 20130604
  Receipt Date: 20130917
  Transmission Date: 20140515
  Serious: Yes (Hospitalization, Other)
  Sender: FDA-Public Use
  Company Number: AU-ROCHE-1231049

PATIENT
  Age: 90 Year
  Sex: Female

DRUGS (7)
  1. RANIBIZUMAB [Suspect]
     Indication: AGE-RELATED MACULAR DEGENERATION
     Route: 050
     Dates: start: 2009, end: 20120511
  2. RANIBIZUMAB [Suspect]
     Indication: CHOROIDAL NEOVASCULARISATION
     Route: 050
     Dates: start: 20110624
  3. RANIBIZUMAB [Suspect]
     Route: 050
     Dates: start: 20110826
  4. RANIBIZUMAB [Suspect]
     Route: 050
     Dates: start: 20120511
  5. AMLODIPINE [Concomitant]
  6. BRUFEN [Concomitant]
  7. BETADINE [Concomitant]
     Route: 061

REACTIONS (6)
  - Cerebrovascular accident [Unknown]
  - Blindness unilateral [Unknown]
  - Dementia [Unknown]
  - Eye pain [Unknown]
  - Chromatopsia [Unknown]
  - Dementia Alzheimer^s type [Unknown]
